FAERS Safety Report 8360910-X (Version None)
Quarter: 2012Q2

REPORT INFORMATION
  Report Type: 
  Country: None (occurrence: None)
  Receive Date: 20120515
  Receipt Date: 20120509
  Transmission Date: 20120825
  Serious: Yes (Hospitalization)
  Sender: FDA-Public Use
  Company Number: IT-BRISTOL-MYERS SQUIBB COMPANY-16583023

PATIENT
  Age: 67 Year
  Sex: Male

DRUGS (1)
  1. COUMADIN [Suspect]
     Indication: EMBOLISM
     Dates: start: 20050101, end: 20120419

REACTIONS (2)
  - HAEMATOMA [None]
  - ANAEMIA [None]
